FAERS Safety Report 7264500-1 (Version None)
Quarter: 2011Q1

REPORT INFORMATION
  Report Type: 
  Country: None (occurrence: None)
  Receive Date: 20110131
  Receipt Date: 20110124
  Transmission Date: 20110831
  Serious: No
  Sender: FDA-Public Use
  Company Number: US-PFIZER INC-2011017673

PATIENT
  Age: 18 Year
  Sex: Male

DRUGS (1)
  1. PROTONIX [Suspect]
     Indication: CHEST DISCOMFORT
     Dosage: 40 MG, 2X/DAY

REACTIONS (1)
  - DRUG INEFFECTIVE [None]
